FAERS Safety Report 19672724 (Version 1)
Quarter: 2021Q3

REPORT INFORMATION
  Report Type: Spontaneous
  Country: US (occurrence: US)
  Receive Date: 20210809
  Receipt Date: 20210809
  Transmission Date: 20211014
  Serious: Yes (Hospitalization, Other)
  Sender: FDA-Public Use
  Company Number: US-TEVA-2021-US-1939583

PATIENT

DRUGS (1)
  1. NEFAZODONE [Suspect]
     Active Substance: NEFAZODONE
     Route: 065

REACTIONS (4)
  - Blood pressure increased [Unknown]
  - Adverse event [Unknown]
  - Inappropriate schedule of product discontinuation [Unknown]
  - Withdrawal syndrome [Unknown]
